FAERS Safety Report 18321866 (Version 6)
Quarter: 2020Q4

REPORT INFORMATION
  Report Type: Spontaneous
  Country: US (occurrence: US)
  Receive Date: 20200928
  Receipt Date: 20201019
  Transmission Date: 20210113
  Serious: No
  Sender: FDA-Public Use
  Company Number: US-PFIZER INC-2018299818

PATIENT
  Age: 72 Year
  Sex: Female
  Weight: 122.47 kg

DRUGS (7)
  1. FLECTOR [Suspect]
     Active Substance: DICLOFENAC EPOLAMINE
     Dosage: 1 DF, DAILY (PATCH APPLIED DAILY, PUT IN ON IN THE MORNING AND REMOVE AT BEDTIME)
     Dates: end: 2019
  2. TRAMADOL. [Concomitant]
     Active Substance: TRAMADOL
     Indication: PAIN
     Dosage: 100 MG, 4X/DAY, (TAKING 50MG TWO TABLETS EVERY SIX HOURS).
  3. FLECTOR [Suspect]
     Active Substance: DICLOFENAC EPOLAMINE
     Indication: BACK PAIN
     Dosage: UNK (1/2 PATCH)
     Route: 062
     Dates: start: 20180714, end: 2018
  4. NORCO [Concomitant]
     Active Substance: ACETAMINOPHEN\HYDROCODONE BITARTRATE
     Dosage: UNK
  5. FLECTOR [Suspect]
     Active Substance: DICLOFENAC EPOLAMINE
     Indication: PAIN
     Dosage: UNK, 2X/DAY (EVERY 12 HOURS)
     Dates: start: 2018
  6. TRAMADOL. [Concomitant]
     Active Substance: TRAMADOL
     Dosage: UNK, AS NEEDED (2 EVERY 6 HOURS AS NEEDED)
  7. TYLENOL [Concomitant]
     Active Substance: ACETAMINOPHEN
     Indication: PAIN
     Dosage: UNK (EXTRA STRENGTH. 2 TABLETS EVERY 6-8 HOURS)

REACTIONS (9)
  - Intentional device misuse [Unknown]
  - Gait inability [Unknown]
  - Off label use [Unknown]
  - Poor quality device used [Unknown]
  - Product use in unapproved indication [Unknown]
  - Hypoacusis [Unknown]
  - Overweight [Unknown]
  - Drug effective for unapproved indication [Unknown]
  - Device adhesion issue [Unknown]

NARRATIVE: CASE EVENT DATE: 2018
